FAERS Safety Report 9099747 (Version 1)
Quarter: 2013Q1

REPORT INFORMATION
  Report Type: Spontaneous
  Country: US (occurrence: US)
  Receive Date: 20130214
  Receipt Date: 20130214
  Transmission Date: 20140127
  Serious: No
  Sender: FDA-Public Use
  Company Number: US-009507513-1302USA006493

PATIENT
  Sex: 0

DRUGS (2)
  1. DR. SCHOLL^S ODOR-X SPRAY POWDER [Suspect]
     Indication: HYPERHIDROSIS
     Dosage: UNK, UNKNOWN
     Route: 048
  2. DR. SCHOLL^S ODOR-X SPRAY POWDER [Suspect]
     Indication: SKIN ODOUR ABNORMAL

REACTIONS (1)
  - Drug ineffective [Unknown]
